FAERS Safety Report 16700520 (Version 1)
Quarter: 2019Q3

REPORT INFORMATION
  Report Type: Spontaneous
  Country: IT (occurrence: IT)
  Receive Date: 20190814
  Receipt Date: 20190814
  Transmission Date: 20191004
  Serious: Yes (Death)
  Sender: FDA-Public Use
  Company Number: IT-TEVA-2019-IT-1090624

PATIENT
  Age: 66 Year
  Sex: Female

DRUGS (2)
  1. WARFARIN [Interacting]
     Active Substance: WARFARIN
     Indication: ATRIAL FIBRILLATION
     Route: 048
  2. RANITIDINE. [Suspect]
     Active Substance: RANITIDINE
     Route: 065

REACTIONS (2)
  - Cerebral haemorrhage [Fatal]
  - Labelled drug-drug interaction medication error [Fatal]
